FAERS Safety Report 9757291 (Version 1)
Quarter: 2013Q4

REPORT INFORMATION
  Report Type: Report from Study
  Country: TH (occurrence: TH)
  Receive Date: 20131213
  Receipt Date: 20131213
  Transmission Date: 20140711
  Serious: Yes (Other)
  Sender: FDA-Public Use
  Company Number: TH-ROCHE-1318804

PATIENT
  Sex: 0

DRUGS (1)
  1. PEGASYS [Suspect]
     Indication: CHRONIC HEPATITIS B
     Route: 065

REACTIONS (4)
  - Pharyngitis [Unknown]
  - Agranulocytosis [Unknown]
  - Discomfort [Unknown]
  - Activities of daily living impaired [Unknown]
